FAERS Safety Report 14665612 (Version 2)
Quarter: 2018Q3

REPORT INFORMATION
  Report Type: Spontaneous
  Country: US (occurrence: US)
  Receive Date: 20180321
  Receipt Date: 20180801
  Transmission Date: 20181010
  Serious: Yes (Other)
  Sender: FDA-Public Use
  Company Number: US-TEVA-2018-US-872984

PATIENT
  Age: 20 Year
  Sex: Female

DRUGS (1)
  1. NORETHINDRONE W/ETHINYLESTRADIOL [Suspect]
     Active Substance: ETHINYL ESTRADIOL\NORETHINDRONE
     Indication: DYSMENORRHOEA
     Dosage: FORMULATION: PILL?1DF: 30 MG NORETHINDRONE/ / 1.50 MG ETHINYLESTRADIOL
     Route: 048

REACTIONS (1)
  - Hepatic adenoma [Recovering/Resolving]
